FAERS Safety Report 8476672-1 (Version None)
Quarter: 2012Q2

REPORT INFORMATION
  Report Type: 
  Country: None (occurrence: None)
  Receive Date: 20120628
  Receipt Date: 20120615
  Transmission Date: 20120825
  Serious: No
  Sender: FDA-Public Use
  Company Number: US-ASTRAZENECA-2009SE10909

PATIENT
  Age: 71 Year
  Sex: Female
  Weight: 78 kg

DRUGS (14)
  1. SEROQUEL [Suspect]
     Route: 048
  2. SEROQUEL [Suspect]
     Route: 048
     Dates: start: 20090701
  3. SEROQUEL [Suspect]
     Indication: BIPOLAR DISORDER
     Route: 048
     Dates: start: 20060101
  4. NEXIUM [Suspect]
     Indication: GASTROOESOPHAGEAL REFLUX DISEASE
     Route: 048
  5. SEROQUEL [Suspect]
     Indication: INSOMNIA
     Route: 048
     Dates: start: 20060101
  6. SEROQUEL [Suspect]
     Route: 048
  7. SEROQUEL [Suspect]
     Route: 048
  8. FOSAMAX [Concomitant]
     Indication: OSTEOPOROSIS
  9. DITROPAN [Concomitant]
     Indication: HYPERTONIC BLADDER
  10. SEROQUEL [Suspect]
     Route: 048
  11. KLONOPIN [Concomitant]
  12. SEROQUEL [Suspect]
     Route: 048
  13. SEROQUEL [Suspect]
     Route: 048
  14. SEROQUEL [Suspect]
     Route: 048
     Dates: start: 20090701

REACTIONS (9)
  - LARYNGITIS [None]
  - WEIGHT DECREASED [None]
  - INSOMNIA [None]
  - DEPRESSIVE SYMPTOM [None]
  - MALAISE [None]
  - EATING DISORDER [None]
  - DYSPHONIA [None]
  - SOMNOLENCE [None]
  - DRUG INEFFECTIVE [None]
